FAERS Safety Report 12280967 (Version 1)
Quarter: 2016Q2

REPORT INFORMATION
  Report Type: Spontaneous
  Country: US (occurrence: None)
  Receive Date: 20160418
  Receipt Date: 20160418
  Transmission Date: 20160815
  Serious: Yes (Other)
  Sender: FDA-Public Use
  Company Number: None

PATIENT
  Age: 25 Year
  Sex: Female
  Weight: 113.4 kg

DRUGS (3)
  1. JOLIVETTE [Concomitant]
     Active Substance: NORETHINDRONE
  2. METRONIDAZOLE GEL USP (TOPICAL) 0.75% [Suspect]
     Active Substance: METRONIDAZOLE
     Indication: VAGINAL INFECTION
     Dosage: 70G 5 INSERTS @ BEDTIME VAGINALLY
     Route: 067
     Dates: start: 20160316, end: 20160318
  3. B VITAMINS [Concomitant]
     Active Substance: CYANOCOBALAMIN\DEXPANTHENOL\NIACINAMIDE\PYRIDOXINE HYDROCHLORIDE\RIBOFLAVIN 5^-PHOSPHATE SODIUM\THIAMINE HYDROCHLORIDE\VITAMIN B COMPLEX

REACTIONS (2)
  - Menorrhagia [None]
  - Polymenorrhoea [None]

NARRATIVE: CASE EVENT DATE: 20160320
